FAERS Safety Report 7056406-8 (Version None)
Quarter: 2010Q4

REPORT INFORMATION
  Report Type: 
  Country: None (occurrence: None)
  Receive Date: 20101021
  Receipt Date: 20101012
  Transmission Date: 20110411
  Serious: Yes (Hospitalization)
  Sender: FDA-Public Use
  Company Number: HU-GENENTECH-308179

PATIENT
  Age: 75 Year
  Sex: Male

DRUGS (4)
  1. MABTHERA [Suspect]
     Indication: PRODUCT USED FOR UNKNOWN INDICATION
     Dosage: UNK
     Route: 042
     Dates: start: 20100301
  2. METHOTREXAT [Suspect]
     Indication: PRODUCT USED FOR UNKNOWN INDICATION
     Dosage: 22 MG, UNK
     Route: 065
  3. METHOTREXAT [Suspect]
     Dosage: 10 MG, UNK
     Route: 065
  4. METHOTREXAT [Suspect]
     Dosage: 12.5 MG, UNK
     Route: 065

REACTIONS (3)
  - AGRANULOCYTOSIS [None]
  - GROIN ABSCESS [None]
  - MOUTH ULCERATION [None]
